FAERS Safety Report 8610768-6 (Version None)
Quarter: 2012Q3

REPORT INFORMATION
  Report Type: 
  Country: None (occurrence: None)
  Receive Date: 20120808
  Receipt Date: 20120724
  Transmission Date: 20120928
  Serious: Yes (Other)
  Sender: FDA-Public Use
  Company Number: FK201202157

PATIENT
  Age: 59 Year
  Sex: Male

DRUGS (2)
  1. GEMCITABINE [Suspect]
     Indication: BLADDER CANCER
  2. CISPLATIN [Suspect]
     Indication: BLADDER CANCER

REACTIONS (2)
  - TUMOUR NECROSIS [None]
  - HAEMOPTYSIS [None]
